FAERS Safety Report 23014835 (Version 1)
Quarter: 2023Q4

REPORT INFORMATION
  Report Type: Report from Study
  Country: None (occurrence: ES)
  Receive Date: 20231002
  Receipt Date: 20231002
  Transmission Date: 20240109
  Serious: Yes (Other)
  Sender: FDA-Public Use
  Company Number: ES-Marksans Pharma Limited-2146542

PATIENT
  Age: 11 Year
  Sex: Female

DRUGS (1)
  1. GABAPENTIN [Suspect]
     Active Substance: GABAPENTIN
     Indication: Post herpetic neuralgia
     Route: 065

REACTIONS (4)
  - Keratouveitis [Unknown]
  - Therapeutic product effect incomplete [Unknown]
  - Disease recurrence [Recovering/Resolving]
  - Ophthalmic herpes zoster [Recovering/Resolving]
